FAERS Safety Report 14165451 (Version 9)
Quarter: 2024Q2

REPORT INFORMATION
  Report Type: Spontaneous
  Country: JP (occurrence: JP)
  Receive Date: 20171107
  Receipt Date: 20240602
  Transmission Date: 20240715
  Serious: Yes (Death, Life-Threatening, Hospitalization, Other)
  Sender: FDA-Public Use
  Company Number: JP-BRISTOL-MYERS SQUIBB COMPANY-BMS-2017-099096

PATIENT
  Age: 56 Year
  Sex: Male
  Weight: 54 kg

DRUGS (10)
  1. OPDIVO [Suspect]
     Active Substance: NIVOLUMAB
     Indication: Non-small cell lung cancer
     Dosage: 3 MG/KG, Q2WK
     Route: 041
     Dates: start: 20160712, end: 20160809
  2. OPDIVO [Suspect]
     Active Substance: NIVOLUMAB
     Dosage: 2ND COURSE
     Route: 041
     Dates: start: 20160809
  3. OPDIVO [Suspect]
     Active Substance: NIVOLUMAB
     Dosage: 2ND COURSE
     Route: 041
     Dates: start: 20160726
  4. VFEND [Suspect]
     Active Substance: VORICONAZOLE
     Indication: Febrile neutropenia
     Dosage: 200 MILLIGRAM, Q12H
     Route: 048
     Dates: start: 20160913, end: 20160920
  5. VFEND [Suspect]
     Active Substance: VORICONAZOLE
     Dosage: 350 MILLIGRAM, Q12H
     Route: 048
     Dates: start: 20160921, end: 20161005
  6. VFEND [Suspect]
     Active Substance: VORICONAZOLE
     Dosage: 600 MILLIGRAM
     Route: 048
     Dates: start: 20161002, end: 20161005
  7. VFEND [Suspect]
     Active Substance: VORICONAZOLE
     Dosage: 300 MILLIGRAM
     Route: 048
     Dates: start: 20161121, end: 20161121
  8. VFEND [Suspect]
     Active Substance: VORICONAZOLE
     Dosage: 300 MILLIGRAM
     Route: 048
     Dates: start: 20161122, end: 20161122
  9. KENKETU GLOVENIN-I [Suspect]
     Active Substance: HUMAN IMMUNOGLOBULIN G
     Indication: Pancytopenia
     Dosage: 5 GRAM, Q6H
     Route: 041
     Dates: start: 20160927, end: 20161001
  10. TS-1 [Concomitant]
     Active Substance: GIMERACIL\OTERACIL POTASSIUM\TEGAFUR
     Indication: Non-small cell lung cancer recurrent
     Dosage: UNK UNK, QD
     Dates: start: 20161120, end: 20161122

REACTIONS (11)
  - Malignant neoplasm progression [Fatal]
  - Interstitial lung disease [Fatal]
  - Febrile neutropenia [Unknown]
  - Thrombocytopenia [Not Recovered/Not Resolved]
  - Pancytopenia [Unknown]
  - Device related infection [Recovered/Resolved]
  - Fusarium infection [Not Recovered/Not Resolved]
  - Cerebral infarction [Unknown]
  - Bronchopulmonary aspergillosis [Unknown]
  - Cellulitis [Recovered/Resolved]
  - Rash [Recovering/Resolving]

NARRATIVE: CASE EVENT DATE: 20160101
